FAERS Safety Report 12895157 (Version 2)
Quarter: 2016Q4

REPORT INFORMATION
  Report Type: Spontaneous
  Country: US (occurrence: US)
  Receive Date: 20161029
  Receipt Date: 20161221
  Transmission Date: 20170207
  Serious: No
  Sender: FDA-Public Use
  Company Number: US-ASTRAZENECA-2016SF11190

PATIENT
  Age: 75 Year
  Sex: Female
  Weight: 89.8 kg

DRUGS (10)
  1. SYMBICORT [Suspect]
     Active Substance: BUDESONIDE\FORMOTEROL FUMARATE DIHYDRATE
     Indication: BRONCHITIS
     Dosage: 160MCG/4.5MCG, TWO INHALATIONS TWO TIMES A DAY
     Route: 055
     Dates: start: 2011, end: 20161016
  2. PROTONIX [Concomitant]
     Active Substance: PANTOPRAZOLE SODIUM
     Indication: ABDOMINAL DISCOMFORT
     Route: 048
     Dates: start: 2004
  3. SYMBICORT [Suspect]
     Active Substance: BUDESONIDE\FORMOTEROL FUMARATE DIHYDRATE
     Indication: CHRONIC OBSTRUCTIVE PULMONARY DISEASE
     Dosage: 160MCG/4.5MCG, TWO INHALATIONS TWO TIMES A DAY
     Route: 055
     Dates: start: 20161008
  4. ASPIRIN. [Concomitant]
     Active Substance: ASPIRIN
     Indication: MYOCARDIAL INFARCTION
     Route: 048
     Dates: start: 2004
  5. LIPITOR [Concomitant]
     Active Substance: ATORVASTATIN CALCIUM
     Indication: BLOOD CHOLESTEROL INCREASED
     Route: 048
     Dates: start: 1992
  6. SYMBICORT [Suspect]
     Active Substance: BUDESONIDE\FORMOTEROL FUMARATE DIHYDRATE
     Indication: BRONCHITIS
     Dosage: 160MCG/4.5MCG, TWO INHALATIONS TWO TIMES A DAY
     Route: 055
     Dates: start: 20161008
  7. PLAVIX [Concomitant]
     Active Substance: CLOPIDOGREL BISULFATE
     Indication: MYOCARDIAL INFARCTION
     Route: 048
     Dates: start: 2004
  8. XANTAC [Concomitant]
     Indication: ACID BASE BALANCE ABNORMAL
     Route: 048
     Dates: start: 201606
  9. SYMBICORT [Suspect]
     Active Substance: BUDESONIDE\FORMOTEROL FUMARATE DIHYDRATE
     Indication: CHRONIC OBSTRUCTIVE PULMONARY DISEASE
     Dosage: 160MCG/4.5MCG, TWO INHALATIONS TWO TIMES A DAY
     Route: 055
     Dates: start: 2011, end: 20161016
  10. SINGULAIR [Concomitant]
     Active Substance: MONTELUKAST SODIUM
     Indication: LUNG DISORDER
     Route: 048
     Dates: start: 1997

REACTIONS (8)
  - Bronchitis [Unknown]
  - Drug dose omission [Unknown]
  - Intentional product use issue [Unknown]
  - Device failure [Unknown]
  - Product use issue [Unknown]
  - Asthenia [Recovered/Resolved]
  - Product taste abnormal [Unknown]
  - Dizziness [Recovered/Resolved]

NARRATIVE: CASE EVENT DATE: 2013
